FAERS Safety Report 10135885 (Version 1)
Quarter: 2014Q2

REPORT INFORMATION
  Report Type: Spontaneous
  Country: GB (occurrence: GB)
  Receive Date: 20140428
  Receipt Date: 20140428
  Transmission Date: 20141212
  Serious: Yes (Hospitalization)
  Sender: FDA-Public Use
  Company Number: PHFR2014GB003069

PATIENT
  Age: 78 Year
  Sex: 0

DRUGS (9)
  1. TEGRETOL-XR [Suspect]
     Dosage: 200 MG, BID
     Route: 048
  2. EPILIM [Suspect]
     Dosage: 400 MG, BID
     Route: 048
  3. SERETIDE [Concomitant]
     Dosage: 500 UG
     Route: 055
  4. TILDIEM [Concomitant]
     Dosage: 200 MG, QD
     Route: 048
  5. LATANOPROST [Concomitant]
     Dosage: 2 DF, QD, BOTH EYES AT NIGHT
     Route: 061
  6. SALBUTAMOL [Concomitant]
     Dosage: 200 UG, PRN
     Route: 055
  7. SENNA [Concomitant]
     Dosage: 15 MG, AT NIGHT
     Route: 048
  8. SIMVASTATIN [Concomitant]
     Dosage: 40 MG, AT NIGHT
     Route: 048
  9. TAMSULOSIN [Concomitant]
     Dosage: 400 UG, QD
     Route: 048

REACTIONS (2)
  - Neutropenic sepsis [Unknown]
  - Pancytopenia [Unknown]
